FAERS Safety Report 23512624 (Version 3)
Quarter: 2024Q2

REPORT INFORMATION
  Report Type: Spontaneous
  Country: US (occurrence: US)
  Receive Date: 20240212
  Receipt Date: 20240514
  Transmission Date: 20240717
  Serious: Yes (Other)
  Sender: FDA-Public Use
  Company Number: US-BAYER-2024A020043

PATIENT
  Age: 66 Year
  Sex: Male
  Weight: 73 kg

DRUGS (3)
  1. JIVI [Suspect]
     Active Substance: DAMOCTOCOG ALFA PEGOL
     Indication: Factor VIII deficiency
     Dosage: 4000 IU BIW OR PRN WHEN BLEEDING
     Route: 042
     Dates: start: 201208, end: 201208
  2. JIVI [Suspect]
     Active Substance: DAMOCTOCOG ALFA PEGOL
     Indication: Factor VIII deficiency
     Dosage: 4000 IU TIMES PER WEEK OR DAILY AS NEEDED FOR BLEEDS.
     Route: 042
     Dates: start: 202210
  3. JIVI [Suspect]
     Active Substance: DAMOCTOCOG ALFA PEGOL
     Indication: Factor VIII deficiency
     Dosage: 4000 IU
     Route: 042

REACTIONS (5)
  - Haemorrhage [None]
  - Haemorrhage [None]
  - Haemorrhage [None]
  - Joint injury [None]
  - Tooth extraction [None]
